FAERS Safety Report 5868979-9 (Version None)
Quarter: 2008Q3

REPORT INFORMATION
  Report Type: 
  Country: None (occurrence: None)
  Receive Date: 20080903
  Receipt Date: 20080827
  Transmission Date: 20090109
  Serious: Yes (Hospitalization)
  Sender: FDA-Public Use
  Company Number: FR-AVENTIS-200813155FR

PATIENT
  Age: 73 Year
  Sex: Male

DRUGS (7)
  1. TAXOTERE [Suspect]
     Indication: PROSTATE CANCER
     Route: 042
     Dates: start: 20080722, end: 20080722
  2. EUPHYLLINE [Concomitant]
     Indication: ASTHMA
  3. FORADIL [Concomitant]
     Indication: ASTHMA
  4. SYMBICORT [Concomitant]
     Indication: ASTHMA
  5. SOLUPRED                           /00016201/ [Concomitant]
     Indication: ASTHMA
  6. FUROSEMIDE [Concomitant]
     Indication: ASTHMA
  7. MEDROL [Concomitant]
     Dates: start: 20080722, end: 20080722

REACTIONS (1)
  - ASTHMA [None]
